FAERS Safety Report 7782861-1 (Version None)
Quarter: 2011Q3

REPORT INFORMATION
  Report Type: 
  Country: None (occurrence: None)
  Receive Date: 20110928
  Receipt Date: 20110915
  Transmission Date: 20111222
  Serious: Yes (Other)
  Sender: FDA-Public Use
  Company Number: PHFR2010GB06175

PATIENT
  Sex: Female

DRUGS (2)
  1. CYCLOSPORINE [Suspect]
     Indication: HIDRADENITIS
     Dosage: 3 MG/KG, UNK
     Route: 048
  2. CLOZAPINE [Suspect]
     Indication: SCHIZOPHRENIA
     Dosage: 175 MG, QD
     Route: 048
     Dates: start: 19970626, end: 20110805

REACTIONS (3)
  - HIDRADENITIS [None]
  - PANCREATIC CYST [None]
  - PANCREATITIS [None]
